FAERS Safety Report 5028774-X (Version None)
Quarter: 2006Q2

REPORT INFORMATION
  Report Type: 
  Country: None (occurrence: None)
  Receive Date: 20060501
  Receipt Date: 20060329
  Transmission Date: 20061013
  Serious: No
  Sender: FDA-Public Use
  Company Number: 200613025US

PATIENT
  Age: 66 Year
  Sex: Female
  Weight: 63 kg

DRUGS (7)
  1. KETEK [Suspect]
     Indication: BRONCHITIS
     Dosage: QD
     Dates: start: 20040101
  2. ESTROGENS CONJUGATED (PREMARIN) [Concomitant]
  3. WARFARIN SODIUM [Concomitant]
  4. VITAMINS NOS (MVI USA/) [Concomitant]
  5. MAGNESIUM LACTATE [Concomitant]
  6. VACCINIUM MACROCARPON [Concomitant]
  7. CALCIUM GLUCONATE [Concomitant]

REACTIONS (4)
  - DIZZINESS [None]
  - HEADACHE [None]
  - NAUSEA [None]
  - VISION BLURRED [None]
